FAERS Safety Report 8298040-8 (Version None)
Quarter: 2012Q2

REPORT INFORMATION
  Report Type: 
  Country: None (occurrence: None)
  Receive Date: 20120419
  Receipt Date: 20120411
  Transmission Date: 20120825
  Serious: Yes (Hospitalization)
  Sender: FDA-Public Use
  Company Number: CN-ASTRAZENECA-2012SE20273

PATIENT
  Age: 74 Year
  Sex: Female

DRUGS (4)
  1. CEPHALOSPORIN [Suspect]
     Route: 042
  2. PLENDIL [Suspect]
     Route: 048
     Dates: start: 20090101
  3. AZITHROMYCIN [Suspect]
     Route: 042
  4. PLENDIL [Suspect]
     Indication: HYPERTENSION
     Route: 048
     Dates: start: 20040101

REACTIONS (3)
  - ANAL PROLAPSE [None]
  - NASOPHARYNGITIS [None]
  - WHITE BLOOD CELL COUNT DECREASED [None]
